FAERS Safety Report 5024910-X (Version None)
Quarter: 2006Q2

REPORT INFORMATION
  Report Type: 
  Country: None (occurrence: None)
  Receive Date: 20060607
  Receipt Date: 20060601
  Transmission Date: 20061013
  Serious: Yes (Hospitalization)
  Sender: FDA-Public Use
  Company Number: PHO-2006-017

PATIENT
  Age: 73 Year
  Sex: Female

DRUGS (5)
  1. PHOTOFRIN [Suspect]
     Indication: DYSPLASIA
     Dosage: 2.0 MG/KG IV
     Route: 042
     Dates: start: 20040301
  2. PHOTOFRIN [Suspect]
     Indication: LIP AND/OR ORAL CAVITY CANCER STAGE 0
     Dosage: 2.0 MG/KG IV
     Route: 042
     Dates: start: 20040301
  3. PHOTOFRIN [Suspect]
     Indication: PAIN
     Dosage: 2.0 MG/KG IV
     Route: 042
     Dates: start: 20040301
  4. PHOTOFRIN [Suspect]
     Indication: PERIODONTAL DISEASE
     Dosage: 2.0 MG/KG IV
     Route: 042
     Dates: start: 20040301
  5. ACCUTANE [Concomitant]

REACTIONS (8)
  - DYSPLASIA [None]
  - LIP AND/OR ORAL CAVITY CANCER STAGE 0 [None]
  - METASTATIC NEOPLASM [None]
  - OEDEMA MOUTH [None]
  - ORAL INTAKE REDUCED [None]
  - PAIN [None]
  - PHARYNGOLARYNGEAL PAIN [None]
  - RECURRENT CANCER [None]
